FAERS Safety Report 6532138-7 (Version None)
Quarter: 2010Q1

REPORT INFORMATION
  Report Type: 
  Country: None (occurrence: None)
  Receive Date: 20100107
  Receipt Date: 20100107
  Transmission Date: 20100710
  Serious: Yes (Other)
  Sender: FDA-Public Use
  Company Number: None

PATIENT
  Sex: Female
  Weight: 63.5036 kg

DRUGS (4)
  1. DAYQUIL PHENYLEPHRINE 5MGVICKS [Suspect]
     Indication: COUGH
     Dosage: 2 PILLS 6 HOURS PO
     Route: 048
     Dates: start: 20090616, end: 20090617
  2. DAYQUIL PHENYLEPHRINE 5MGVICKS [Suspect]
     Indication: SINUS HEADACHE
     Dosage: 2 PILLS 6 HOURS PO
     Route: 048
     Dates: start: 20090616, end: 20090617
  3. TYLENOL PHENYLEPHRINE 5MGMCNEIL-PPC [Suspect]
     Indication: COUGH
     Dosage: 2 PILLS 6 HOURS PO
     Route: 048
     Dates: start: 20090612, end: 20090713
  4. TYLENOL PHENYLEPHRINE 5MGMCNEIL-PPC [Suspect]
     Indication: SINUS HEADACHE
     Dosage: 2 PILLS 6 HOURS PO
     Route: 048
     Dates: start: 20090612, end: 20090713

REACTIONS (4)
  - CONVULSION [None]
  - NERVOUSNESS [None]
  - RESTLESSNESS [None]
  - VOMITING PROJECTILE [None]
